FAERS Safety Report 17096599 (Version 1)
Quarter: 2019Q4

REPORT INFORMATION
  Report Type: Spontaneous
  Country: GB (occurrence: GB)
  Receive Date: 20191202
  Receipt Date: 20191202
  Transmission Date: 20200122
  Serious: Yes (Other)
  Sender: FDA-Public Use
  Company Number: GB-BAXTER-2019BAX024032

PATIENT
  Age: 78 Year
  Sex: Male

DRUGS (1)
  1. FUROSEMIDE 10MG/ML SOLUTION FOR INJECTION [Suspect]
     Active Substance: FUROSEMIDE
     Indication: PRODUCT USED FOR UNKNOWN INDICATION
     Route: 065

REACTIONS (6)
  - Wrong patient received product [Unknown]
  - Condition aggravated [Unknown]
  - Malaise [Unknown]
  - Orthostatic hypotension [Unknown]
  - Mobility decreased [Unknown]
  - Dizziness [Unknown]
